FAERS Safety Report 8228235-0 (Version None)
Quarter: 2012Q1

REPORT INFORMATION
  Report Type: 
  Country: None (occurrence: None)
  Receive Date: 20120322
  Receipt Date: 20111116
  Transmission Date: 20120608
  Serious: No
  Sender: FDA-Public Use
  Company Number: US-BRISTOL-MYERS SQUIBB COMPANY-16234148

PATIENT
  Age: 66 Year
  Sex: Female
  Weight: 54 kg

DRUGS (5)
  1. ERBITUX [Suspect]
     Indication: SQUAMOUS CELL CARCINOMA
     Dosage: NO OF TREATMENTS 3 THE FIRST DOSE WAS DOUBLE AND THE LAST TWO WERE NORMAL
     Dates: start: 20111031
  2. XELODA [Concomitant]
  3. TEMAZEPAM [Concomitant]
  4. VITAMIN TAB [Concomitant]
  5. LORAZEPAM [Concomitant]

REACTIONS (3)
  - RASH PAPULAR [None]
  - PRURITUS [None]
  - DRY SKIN [None]
